FAERS Safety Report 18986035 (Version 2)
Quarter: 2021Q1

REPORT INFORMATION
  Report Type: Spontaneous
  Country: US (occurrence: US)
  Receive Date: 20210309
  Receipt Date: 20210316
  Transmission Date: 20210420
  Serious: Yes (Other)
  Sender: FDA-Public Use
  Company Number: US-BAYER-2021-090229

PATIENT

DRUGS (1)
  1. ALKA?SELTZER PLUS SEVERE COUGH MUCUS AND CONGESTION LIQUID GELS [Suspect]
     Active Substance: ACETAMINOPHEN\DEXTROMETHORPHAN HYDROBROMIDE\GUAIFENESIN\PHENYLEPHRINE HYDROCHLORIDE
     Dosage: 2 DF, BID
     Route: 048

REACTIONS (7)
  - Respiratory arrest [Unknown]
  - Adverse drug reaction [Unknown]
  - Product use complaint [None]
  - Choking [Not Recovered/Not Resolved]
  - Panic attack [Unknown]
  - Product size issue [None]
  - Gastrointestinal disorder [Not Recovered/Not Resolved]
